FAERS Safety Report 17132830 (Version 2)
Quarter: 2019Q4

REPORT INFORMATION
  Report Type: Spontaneous
  Country: RO (occurrence: RO)
  Receive Date: 20191210
  Receipt Date: 20191216
  Transmission Date: 20200122
  Serious: Yes (Life-Threatening, Hospitalization, Other)
  Sender: FDA-Public Use
  Company Number: RO-ACCORD-164401

PATIENT
  Age: 28 Year
  Sex: Female
  Weight: 64 kg

DRUGS (1)
  1. METHOTREXATE. [Suspect]
     Active Substance: METHOTREXATE
     Indication: ECTOPIC PREGNANCY
     Dosage: SINGLE DOSE OF METHOTREXATE 50 MG/M^2 (80 MG INTRAMUSCULAR)
     Route: 030

REACTIONS (4)
  - Off label use [Unknown]
  - Acute abdomen [Recovered/Resolved]
  - Maternal exposure during pregnancy [Unknown]
  - Shock haemorrhagic [Recovered/Resolved]
